FAERS Safety Report 19733936 (Version 1)
Quarter: 2021Q3

REPORT INFORMATION
  Report Type: Spontaneous
  Country: US (occurrence: US)
  Receive Date: 20210823
  Receipt Date: 20210823
  Transmission Date: 20211014
  Serious: No
  Sender: FDA-Public Use
  Company Number: US-ALLERGAN-2046751US

PATIENT
  Age: 63 Year
  Sex: Female
  Weight: 68.95 kg

DRUGS (7)
  1. LATANOPROST. [Suspect]
     Active Substance: LATANOPROST
     Indication: MIGRAINE
     Dosage: RUBS IT INTO TWO NAILS AND RUBS IN
     Route: 061
     Dates: start: 20180712
  2. OLOPATADINE. [Suspect]
     Active Substance: OLOPATADINE
     Dosage: 2 GTT
     Route: 047
     Dates: start: 202009
  3. OLOPATADINE. [Suspect]
     Active Substance: OLOPATADINE
     Indication: INFECTION PROPHYLAXIS
     Dosage: 2 GTT
     Route: 047
     Dates: start: 20200930
  4. KETOROLAC [Suspect]
     Active Substance: KETOROLAC TROMETHAMINE
     Dosage: 1 GTT, BID
     Route: 047
     Dates: start: 202009
  5. ZYLET [Suspect]
     Active Substance: LOTEPREDNOL ETABONATE\TOBRAMYCIN
     Indication: INFECTION PROPHYLAXIS
     Dosage: 2 GTT, BID
     Route: 047
     Dates: start: 20200930
  6. KETOROLAC [Suspect]
     Active Substance: KETOROLAC TROMETHAMINE
     Indication: ANTIINFLAMMATORY THERAPY
     Dosage: UNK
     Route: 047
     Dates: start: 20200930
  7. ZYLET [Suspect]
     Active Substance: LOTEPREDNOL ETABONATE\TOBRAMYCIN
     Dosage: 2 GTT, QD
     Route: 047
     Dates: start: 202009

REACTIONS (3)
  - Migraine [Recovered/Resolved]
  - Headache [Recovered/Resolved]
  - Vomiting [Recovered/Resolved]

NARRATIVE: CASE EVENT DATE: 20200922
